FAERS Safety Report 5519716-9 (Version None)
Quarter: 2007Q4

REPORT INFORMATION
  Report Type: 
  Country: None (occurrence: None)
  Receive Date: 20071116
  Receipt Date: 20070927
  Transmission Date: 20080405
  Serious: No
  Sender: FDA-Public Use
  Company Number: A0661469A

PATIENT
  Age: 78 Year
  Sex: Male

DRUGS (15)
  1. COREG CR [Suspect]
     Dosage: 20MG SINGLE DOSE
     Route: 048
     Dates: start: 20070629, end: 20070629
  2. COREG [Suspect]
     Dosage: 6.25MG UNKNOWN
     Route: 048
     Dates: start: 20070601, end: 20070101
  3. PLAVIX [Concomitant]
  4. QUINAPRIL HCL [Concomitant]
  5. SOTALOL HYDROCHLORIDE [Concomitant]
  6. ACTOS [Concomitant]
  7. GLIPIZIDE [Concomitant]
  8. CYMBALTA [Concomitant]
  9. ASCORBIC ACID [Concomitant]
  10. ECOTRIN [Concomitant]
  11. VITAMIN E [Concomitant]
  12. PROTONIX [Concomitant]
  13. FENTANYL [Concomitant]
  14. OXYCODONE HCL [Concomitant]
  15. SENOKOT [Concomitant]

REACTIONS (7)
  - ABDOMINAL PAIN [None]
  - ASTHENIA [None]
  - BLOOD GLUCOSE INCREASED [None]
  - DISCOMFORT [None]
  - FATIGUE [None]
  - NAUSEA [None]
  - TREMOR [None]
